FAERS Safety Report 17960388 (Version 1)
Quarter: 2020Q2

REPORT INFORMATION
  Report Type: Report from Study
  Country: DE (occurrence: DE)
  Receive Date: 20200630
  Receipt Date: 20200630
  Transmission Date: 20200714
  Serious: Yes (Other)
  Sender: FDA-Public Use
  Company Number: DE-ROCHE-2632309

PATIENT

DRUGS (1)
  1. MYCOPHENOLATE MOFETIL. [Suspect]
     Active Substance: MYCOPHENOLATE MOFETIL
     Indication: LUPUS NEPHRITIS
     Route: 065

REACTIONS (18)
  - Otitis media [Unknown]
  - Skin infection [Unknown]
  - Leukopenia [Unknown]
  - Skin striae [Unknown]
  - Headache [Unknown]
  - Cardiac disorder [Unknown]
  - Osteonecrosis [Unknown]
  - Pyrexia [Unknown]
  - Diarrhoea [Unknown]
  - Thrombocytopenia [Unknown]
  - Cushingoid [Unknown]
  - Soft tissue infection [Unknown]
  - Rash [Unknown]
  - Mucosal ulceration [Unknown]
  - Cataract [Unknown]
  - Upper respiratory tract infection [Unknown]
  - Alopecia [Unknown]
  - Menstrual disorder [Unknown]
